FAERS Safety Report 8759620 (Version 1)
Quarter: 2012Q4

REPORT INFORMATION
  Report Type: 
  Country: US (occurrence: US)
  Receive Date: 20120829
  Receipt Date: 20120829
  Transmission Date: 20130627
  Serious: No
  Sender: FDA-Public Use
  Company Number: US-GLAXOSMITHKLINE-A0940230A

PATIENT
  Age: 55 Year
  Sex: Female

DRUGS (7)
  1. MALARONE [Suspect]
     Indication: BABESIOSIS
     Dosage: 1TBS Twice per day
     Route: 048
     Dates: start: 20110609, end: 20110709
  2. DOXYCLINE [Concomitant]
  3. SEPTRA [Concomitant]
  4. AMOXICILLIN [Concomitant]
  5. PRILOSEC [Concomitant]
  6. ZANTAC [Concomitant]
  7. PROBIOTIC [Concomitant]

REACTIONS (6)
  - Nausea [Unknown]
  - Abdominal pain upper [Unknown]
  - Depression [Unknown]
  - Off label use [Unknown]
  - Diarrhoea [Unknown]
  - Stomatitis [Unknown]
